FAERS Safety Report 7705347-9 (Version None)
Quarter: 2011Q3

REPORT INFORMATION
  Report Type: 
  Country: None (occurrence: None)
  Receive Date: 20110818
  Receipt Date: 20110805
  Transmission Date: 20111222
  Serious: Yes (Other)
  Sender: FDA-Public Use
  Company Number: AUR-APL-2011-04610

PATIENT
  Age: 2 Year
  Sex: Male

DRUGS (3)
  1. AMOXICILLIN [Suspect]
     Indication: UPPER RESPIRATORY TRACT INFECTION
     Dates: start: 20100101
  2. CHILDREN'S MOTRIN [Suspect]
     Indication: UPPER RESPIRATORY TRACT INFECTION
     Dosage: (2 IN 1 D), ORAL
     Route: 048
     Dates: start: 20100111, end: 20100117
  3. CHILDREN'S MOTRIN [Suspect]
     Indication: PYREXIA
     Dosage: (2 IN 1 D), ORAL
     Route: 048
     Dates: start: 20100111, end: 20100117

REACTIONS (7)
  - ECZEMA [None]
  - PRODUCT MEASURED POTENCY ISSUE [None]
  - PITYRIASIS RUBRA PILARIS [None]
  - ABDOMINAL PAIN UPPER [None]
  - PRODUCT CONTAMINATION MICROBIAL [None]
  - PRODUCT CONTAMINATION PHYSICAL [None]
  - PRODUCT QUALITY ISSUE [None]
